FAERS Safety Report 5144548-3 (Version None)
Quarter: 2006Q4

REPORT INFORMATION
  Report Type: 
  Country: None (occurrence: None)
  Receive Date: 20061031
  Receipt Date: 20061018
  Transmission Date: 20070319
  Serious: Yes (Death, Other)
  Sender: FDA-Public Use
  Company Number: 2006121493

PATIENT
  Age: 65 Year
  Sex: Female

DRUGS (4)
  1. SUTENT [Suspect]
     Indication: RENAL CELL CARCINOMA STAGE UNSPECIFIED
     Dosage: 50 MG (50 MG, 1 IN 1 D), ORAL
     Route: 048
     Dates: start: 20060720
  2. TARMADOL                    (TRAMADOL) [Concomitant]
  3. ACETAMINOPHEN [Concomitant]
  4. PREGABALIN             (PREGABALIN) [Concomitant]

REACTIONS (4)
  - CONDITION AGGRAVATED [None]
  - MEDIASTINAL DISORDER [None]
  - PLEURAL EFFUSION [None]
  - SUPERIOR VENA CAVAL OCCLUSION [None]
